FAERS Safety Report 15328171 (Version 3)
Quarter: 2019Q2

REPORT INFORMATION
  Report Type: Report from Study
  Country: JP (occurrence: JP)
  Receive Date: 20180828
  Receipt Date: 20190603
  Transmission Date: 20190711
  Serious: Yes (Hospitalization, Other)
  Sender: FDA-Public Use
  Company Number: JP-AMGEN-JPNCT2018118661

PATIENT
  Age: 87 Year
  Sex: Female

DRUGS (33)
  1. CINACALCET HCL [Suspect]
     Active Substance: CINACALCET HYDROCHLORIDE
     Indication: HYPERPARATHYROIDISM PRIMARY
     Dosage: 25 MILLIGRAM, BID
     Route: 048
     Dates: start: 20170323, end: 20170402
  2. NICERGOLINE [Concomitant]
     Active Substance: NICERGOLINE
     Indication: CEREBRAL INFARCTION
     Dosage: 15 MILLIGRAM
     Route: 048
  3. NICERGOLINE [Concomitant]
     Active Substance: NICERGOLINE
     Indication: CEREBRAL INFARCTION
  4. POSTERISAN FORTE [Concomitant]
     Active Substance: LIDOCAINE
     Indication: HAEMORRHOIDS
     Dosage: 4 GRAM
     Route: 061
     Dates: start: 20170601
  5. SENNOSIDE [Concomitant]
     Active Substance: SENNOSIDES
     Indication: CONSTIPATION
     Dosage: 24 MILLIGRAM
     Route: 048
     Dates: start: 20171228, end: 20171228
  6. AMITIZA [Concomitant]
     Active Substance: LUBIPROSTONE
     Indication: CONSTIPATION
     Dosage: 24 MICROGRAM
     Route: 048
  7. DAIKENCHUTO [Concomitant]
     Active Substance: HERBALS
     Indication: CONSTIPATION
     Dosage: 7.5 GRAM
     Route: 048
     Dates: start: 20170405
  8. SOLDEM 1 [Concomitant]
     Active Substance: DEXTROSE\SODIUM CHLORIDE\SODIUM LACTATE
     Indication: HYPERCALCAEMIA
  9. SOLDEM 3A [Concomitant]
     Active Substance: CARBOHYDRATES\POTASSIUM CHLORIDE\SODIUM CHLORIDE\SODIUM LACTATE
     Indication: HYPERPARATHYROIDISM PRIMARY
     Dosage: 500 MILLILITER
     Route: 065
     Dates: end: 20170324
  10. CALONAL [Concomitant]
     Active Substance: ACETAMINOPHEN
     Indication: PRODUCT USED FOR UNKNOWN INDICATION
     Dosage: 400 MILLIGRAM
     Route: 048
     Dates: start: 20170326, end: 20170326
  11. PLAVIX [Concomitant]
     Active Substance: CLOPIDOGREL BISULFATE
     Indication: CEREBRAL INFARCTION
     Dosage: 75 MILLIGRAM
     Route: 048
  12. BONVIVA [Concomitant]
     Active Substance: IBANDRONATE SODIUM
     Indication: HYPERPARATHYROIDISM PRIMARY
     Dosage: 1 MILLIGRAM
     Route: 065
     Dates: start: 20170406
  13. BONVIVA [Concomitant]
     Active Substance: IBANDRONATE SODIUM
     Indication: HYPERCALCAEMIA
  14. ARICEPT [Concomitant]
     Active Substance: DONEPEZIL HYDROCHLORIDE
     Indication: DEMENTIA ALZHEIMER^S TYPE
     Dosage: 3 MILLIGRAM
     Route: 048
     Dates: start: 20170421
  15. PIARLE [Concomitant]
     Indication: CONSTIPATION
     Dosage: 15 MILLILITER
     Route: 048
     Dates: start: 20170501
  16. VENETLIN [Concomitant]
     Active Substance: ALBUTEROL SULFATE
     Indication: PRODUCT USED FOR UNKNOWN INDICATION
  17. CINACALCET HCL [Suspect]
     Active Substance: CINACALCET HYDROCHLORIDE
     Dosage: 25 MILLIGRAM, QD
     Route: 048
     Dates: start: 20170403, end: 20170405
  18. CINACALCET HCL [Suspect]
     Active Substance: CINACALCET HYDROCHLORIDE
     Dosage: 12.5 MILLIGRAM, QD
     Route: 048
     Dates: start: 20170422
  19. NEXIUM [Concomitant]
     Active Substance: ESOMEPRAZOLE MAGNESIUM
     Indication: PRODUCT USED FOR UNKNOWN INDICATION
     Dosage: 20 MILLIGRAM
     Route: 048
  20. MEMARY [Concomitant]
     Active Substance: MEMANTINE HYDROCHLORIDE
     Indication: DEMENTIA ALZHEIMER^S TYPE
     Dosage: 15 MILLIGRAM
     Route: 048
  21. ISOTONIC SODIUM CHLORIDE SOLUTION [Concomitant]
     Active Substance: SODIUM CHLORIDE
     Indication: HYPERPARATHYROIDISM PRIMARY
     Dosage: 1000 MILLILITER
     Route: 065
     Dates: start: 20170323, end: 20170323
  22. VENETLIN [Concomitant]
     Active Substance: ALBUTEROL SULFATE
     Indication: PRODUCT USED FOR UNKNOWN INDICATION
     Dosage: 0.9 MILLILITER
     Dates: start: 20170925, end: 20171001
  23. GASMOTIN [Concomitant]
     Active Substance: MOSAPRIDE CITRATE
     Indication: CHRONIC GASTRITIS
     Dosage: 15 MILLIGRAM
     Route: 048
  24. MAGNESIUM OXIDE. [Concomitant]
     Active Substance: MAGNESIUM OXIDE
     Indication: CONSTIPATION
     Dosage: 990 MILLIGRAM
     Route: 048
     Dates: start: 20170329
  25. ROZEREM [Concomitant]
     Active Substance: RAMELTEON
     Indication: INSOMNIA
     Dosage: 8 MILLIGRAM
     Route: 048
  26. SOLDEM 3A [Concomitant]
     Active Substance: CARBOHYDRATES\POTASSIUM CHLORIDE\SODIUM CHLORIDE\SODIUM LACTATE
     Indication: HYPERCALCAEMIA
  27. AMLODIPINE [Concomitant]
     Active Substance: AMLODIPINE BESYLATE
     Indication: HYPERTENSION
     Dosage: 2.5 MILLIGRAM
     Route: 048
  28. SOLDEM 1 [Concomitant]
     Active Substance: DEXTROSE\SODIUM CHLORIDE\SODIUM LACTATE
     Indication: HYPERPARATHYROIDISM PRIMARY
     Dosage: 500 MILLILITER
     Route: 065
     Dates: end: 20170324
  29. ELCATONIN [Concomitant]
     Active Substance: ELCATONIN
     Indication: HYPERPARATHYROIDISM PRIMARY
     Dosage: 80 UNK
     Route: 065
     Dates: end: 20170324
  30. ELCATONIN [Concomitant]
     Active Substance: ELCATONIN
     Indication: HYPERCALCAEMIA
  31. HERBAL NOS [Concomitant]
     Active Substance: HERBALS
     Indication: PRODUCT USED FOR UNKNOWN INDICATION
     Dosage: 7.5 GRAM
     Route: 048
     Dates: start: 20170414, end: 20170420
  32. ISOTONIC SODIUM CHLORIDE SOLUTION [Concomitant]
     Active Substance: SODIUM CHLORIDE
     Indication: HYPERCALCAEMIA
  33. POTASSIUM L ASPARTATE K [Concomitant]
     Active Substance: POTASSIUM ASPARTATE
     Indication: HYPOKALAEMIA
     Dosage: 10 MILLIEQUIVALENT
     Route: 065
     Dates: end: 20170324

REACTIONS (4)
  - Rectal ulcer [Recovering/Resolving]
  - Pulmonary mass [Recovering/Resolving]
  - Gastrointestinal disorder [Recovering/Resolving]
  - Pneumonia bacterial [Recovering/Resolving]

NARRATIVE: CASE EVENT DATE: 20170327
